FAERS Safety Report 6336386-0 (Version None)
Quarter: 2009Q3

REPORT INFORMATION
  Report Type: 
  Country: None (occurrence: None)
  Receive Date: 20090901
  Receipt Date: 20090818
  Transmission Date: 20100115
  Serious: Yes (Other)
  Sender: FDA-Public Use
  Company Number: US-TYCO HEALTHCARE/MALLINCKRODT-T200901575

PATIENT
  Sex: Male

DRUGS (1)
  1. METHYLIN [Suspect]

REACTIONS (1)
  - SUICIDAL IDEATION [None]
